FAERS Safety Report 4590072-6 (Version None)
Quarter: 2005Q1

REPORT INFORMATION
  Report Type: 
  Country: None (occurrence: None)
  Receive Date: 20050217
  Receipt Date: 20050204
  Transmission Date: 20050727
  Serious: Yes (Other)
  Sender: FDA-Public Use
  Company Number: CIP05000300

PATIENT
  Age: 84 Year
  Sex: Female

DRUGS (5)
  1. BENET                  (RISEDRONATE SODIUM) [Suspect]
     Indication: OSTEOPOROSIS
     Dosage: 2.5 MG DAILY, ORAL
     Route: 048
     Dates: start: 20050108, end: 20050114
  2. NU-LOTAN (LOSARTAN POTASSIUM) [Concomitant]
  3. LASIX                       (FUROSEMIDE SODIUM, FUROSEMIDE) [Concomitant]
  4. MAGLAX             (MAGNESIUM OXIDE) [Concomitant]
  5. NITRODERM [Concomitant]

REACTIONS (3)
  - EOSINOPHIL COUNT INCREASED [None]
  - HAEMATOCRIT DECREASED [None]
  - HYPERKALAEMIA [None]
